FAERS Safety Report 18657234 (Version 2)
Quarter: 2021Q1

REPORT INFORMATION
  Report Type: Report from Study
  Country: US (occurrence: US)
  Receive Date: 20201223
  Receipt Date: 20210114
  Transmission Date: 20210419
  Serious: Yes (Hospitalization, Other)
  Sender: FDA-Public Use
  Company Number: US-ASTELLAS-2020US044837

PATIENT
  Sex: Male

DRUGS (2)
  1. VENCLEXTA [Concomitant]
     Active Substance: VENETOCLAX
     Indication: PRODUCT USED FOR UNKNOWN INDICATION
     Route: 065
  2. ASP2215 [Suspect]
     Active Substance: GILTERITINIB
     Indication: ACUTE MYELOID LEUKAEMIA
     Route: 048
     Dates: start: 201912

REACTIONS (7)
  - Dehydration [Unknown]
  - Dysgeusia [Unknown]
  - Full blood count decreased [Unknown]
  - Decreased appetite [Unknown]
  - Asthenia [Unknown]
  - Urinary tract infection [Unknown]
  - Pneumonia [Unknown]
